FAERS Safety Report 5728847-X (Version None)
Quarter: 2008Q2

REPORT INFORMATION
  Report Type: 
  Country: None (occurrence: None)
  Receive Date: 20080506
  Receipt Date: 20080425
  Transmission Date: 20081010
  Serious: Yes (Hospitalization)
  Sender: FDA-Public Use
  Company Number: FR-ELI_LILLY_AND_COMPANY-FR200803005445

PATIENT
  Age: 73 Year
  Sex: Female

DRUGS (4)
  1. FORTEO [Suspect]
     Indication: OSTEOPOROSIS
     Dosage: 20 UG, DAILY (1/D)
     Route: 058
     Dates: start: 20071107
  2. ZALDIAR [Concomitant]
     Indication: PAIN
     Dosage: 3 D/F, DAILY (1/D)
     Route: 048
  3. LYRICA [Concomitant]
     Indication: PAIN
     Dosage: 50 MG, DAILY (1/D)
     Route: 048
  4. STILNOX [Concomitant]
     Indication: INSOMNIA
     Dosage: 1 D/F, DAILY (1/D)
     Route: 048

REACTIONS (3)
  - FALL [None]
  - FOOT FRACTURE [None]
  - RIB FRACTURE [None]
